FAERS Safety Report 7036397-6 (Version None)
Quarter: 2010Q4

REPORT INFORMATION
  Report Type: 
  Country: None (occurrence: None)
  Receive Date: 20101008
  Receipt Date: 20101001
  Transmission Date: 20110411
  Serious: Yes (Hospitalization, Other)
  Sender: FDA-Public Use
  Company Number: US-AMGEN-KDL443921

PATIENT
  Sex: Male
  Weight: 99.9 kg

DRUGS (1)
  1. PROCRIT [Suspect]
     Indication: PRODUCT USED FOR UNKNOWN INDICATION
     Route: 058
     Dates: start: 20090201, end: 20100125

REACTIONS (9)
  - ALOPECIA [None]
  - ASTHENIA [None]
  - BLOOD COUNT ABNORMAL [None]
  - MALAISE [None]
  - PAIN [None]
  - PIGMENTATION DISORDER [None]
  - RASH [None]
  - REFRACTORY ANAEMIA WITH RINGED SIDEROBLASTS [None]
  - URTICARIA [None]
